FAERS Safety Report 23879319 (Version 1)
Quarter: 2024Q2

REPORT INFORMATION
  Report Type: Spontaneous
  Country: US (occurrence: US)
  Receive Date: 20240521
  Receipt Date: 20240521
  Transmission Date: 20240715
  Serious: Yes (Other)
  Sender: FDA-Public Use
  Company Number: US-FreseniusKabi-FK202407583

PATIENT
  Age: 72 Year
  Sex: Male
  Weight: 92 kg

DRUGS (27)
  1. HEPARIN SODIUM [Suspect]
     Active Substance: HEPARIN SODIUM
     Indication: Catheterisation cardiac
     Dosage: FORM OF ADMIN: INJECTION?DURING A LHC ON 5/6/2024, PATIENT WAS GIVEN: ?1053 ? 8,000 UNITS ?1103 ? 5,
     Dates: start: 20240506, end: 20240506
  2. Aspirin 81 MG EC tablet [Concomitant]
     Indication: Product used for unknown indication
     Dosage: 81 MG EC TABLET
  3. atorvastatin (LIPITOR) 80 MG tablet [Concomitant]
     Indication: Product used for unknown indication
     Dosage: FORM OF ADMIN: TABLET
  4. atovaquone (MEPRON) 150 mg/mL oral suspension [Concomitant]
     Indication: Product used for unknown indication
     Dosage: 150 MG/ML ORAL SUSPENSION
  5. carvedilol (COREG) 12.5 MG tablet [Concomitant]
     Indication: Product used for unknown indication
     Dosage: FORM OF ADMIN: TABLET
  6. clopidogrel (PLAVIX) 75 MG tablet [Concomitant]
     Indication: Product used for unknown indication
     Dosage: FORM OF ADMIN: TABLET
  7. ergocalciferol (VITAMIN D-2) 50000 Units capsule [Concomitant]
     Indication: Product used for unknown indication
     Dosage: 50000 UNITS CAPSULE
  8. folic acid (FOLVITE) 400 MCG tablet [Concomitant]
     Indication: Product used for unknown indication
     Dosage: 400 MCG TABLET
  9. furosemide (LASIX) 40 MG tablet [Concomitant]
     Indication: Product used for unknown indication
     Dosage: FORM OF ADMIN: TABLET
  10. gabapentin (NEURONTIN) 300 MG capsule [Concomitant]
     Indication: Product used for unknown indication
     Dosage: FORM OF ADMIN: CAPSULE
  11. insulin glargine (LANTUS SOLOSTAR) 100 UNIT/ML inj pen [Concomitant]
     Indication: Product used for unknown indication
     Dosage: 100 UNIT/ML INJ PEN
  12. Insulin Lispro, 1 Unit Dial, (HumaLOG) 100 UNIT/ML injection [Concomitant]
     Indication: Product used for unknown indication
     Dosage: 1 UNIT DIAL, (HUMALOG) 100 UNIT/ML INJECTION?INSULIN PEN NEEDLE 31G X 5 MM MISC
  13. losartan (COZAAR) 100 MG tablet [Concomitant]
     Indication: Product used for unknown indication
     Dosage: FORM OF ADMIN: TABLET
  14. magnesium oxide (MAG-OX) 400 MG tablet [Concomitant]
     Indication: Product used for unknown indication
     Dosage: FORM OF ADMIN: TABLET
  15. mycophenolic acid (MYFORTIC) 360 MG EC tablet [Concomitant]
     Indication: Product used for unknown indication
     Dosage: 360 MG EC TABLET
  16. nitroglycerin (NITROSTAT) 0.4 MG SL tablet [Concomitant]
     Indication: Product used for unknown indication
     Dosage: 0.4 MG SL TABLET
  17. pantoprazole (PROTONIX) 20 MG EC tablet [Concomitant]
     Indication: Product used for unknown indication
     Dosage: 20 MG EC TABLET
  18. predniSONE (DELTASONE) 5 MG tablet [Concomitant]
     Indication: Product used for unknown indication
     Dosage: FORM OF ADMIN: TABLET
  19. Semaglutide, 0.25 or 0.5MG/DOS, 2 MG/3ML solution pen-injector [Concomitant]
     Indication: Product used for unknown indication
     Dosage: 0.25 OR 0.5MG/DOS, 2 MG/3ML SOLUTION PEN-INJECTOR
  20. senna-docusate sodium (SENOKOT-S) 8.6-50 MG tablet [Concomitant]
     Indication: Product used for unknown indication
     Dosage: 8.6-50 MG TABLET
  21. tacrolimus ER (ENVARSUS XR) 4 MG 24 hr tablet [Concomitant]
     Indication: Product used for unknown indication
     Dosage: 4 MG 24 HR TABLET
  22. tamsulosin (FLOMAX) 0.4 MG 24 hr capsule [Concomitant]
     Indication: Product used for unknown indication
     Dosage: 0.4 MG 24 HR CAPSULE
  23. glucagon (Baqsimi Two Pack) 3 MG/DOSE nasal powder [Concomitant]
     Indication: Product used for unknown indication
     Dosage: 3 MG/DOSE NASAL POWDER
  24. Glucagon HCl, rDNA, (GlucaGen HypoKit) 1 MG injection [Concomitant]
     Indication: Product used for unknown indication
     Dosage: 1 MG INJECTION
  25. mirtazapine (REMERON) 7.5 MG tablet [Concomitant]
     Indication: Product used for unknown indication
     Dosage: FORM OF ADMIN: TABLET
  26. NIFEdipine CC (ADALAT CC) 30 MG 24 hr tablet [Concomitant]
     Indication: Product used for unknown indication
     Dosage: 30 MG 24 HR TABLET
  27. darbepoetin alfa (ARANESP) injection 40 mcg [Concomitant]
     Indication: Product used for unknown indication
     Dosage: INJECTION 40 MCG

REACTIONS (2)
  - Thrombosis [Unknown]
  - Drug ineffective [Unknown]

NARRATIVE: CASE EVENT DATE: 20240506
